FAERS Safety Report 7765612-6 (Version None)
Quarter: 2011Q3

REPORT INFORMATION
  Report Type: 
  Country: None (occurrence: None)
  Receive Date: 20110906
  Receipt Date: 20110503
  Transmission Date: 20111222
  Serious: No
  Sender: FDA-Public Use
  Company Number: 201010040

PATIENT
  Age: 66 Year
  Sex: Female

DRUGS (5)
  1. ALLEGRA [Concomitant]
  2. NEXIUM [Concomitant]
  3. XIAFLEX [Suspect]
     Indication: DUPUYTREN'S CONTRACTURE
     Dosage: 0.58 MG, 1 IN 1 D, INTRALESIONAL , 0.58 MG, 1 IN 1 D, INTRALESIONAL ,  0.58 MG, 1 IN 1 D, INTRALESIO
     Route: 026
     Dates: start: 20101019, end: 20101019
  4. XIAFLEX [Suspect]
     Indication: DUPUYTREN'S CONTRACTURE
     Dosage: 0.58 MG, 1 IN 1 D, INTRALESIONAL , 0.58 MG, 1 IN 1 D, INTRALESIONAL ,  0.58 MG, 1 IN 1 D, INTRALESIO
     Route: 026
     Dates: start: 20100727, end: 20100727
  5. XIAFLEX [Suspect]
     Indication: DUPUYTREN'S CONTRACTURE
     Dosage: 0.58 MG, 1 IN 1 D, INTRALESIONAL , 0.58 MG, 1 IN 1 D, INTRALESIONAL ,  0.58 MG, 1 IN 1 D, INTRALESIO
     Route: 026
     Dates: start: 20101130, end: 20101130

REACTIONS (12)
  - INJECTION SITE SWELLING [None]
  - INJECTION SITE PRURITUS [None]
  - INJECTION SITE HAEMATOMA [None]
  - CONTUSION [None]
  - LYMPHADENOPATHY [None]
  - PAIN [None]
  - OEDEMA PERIPHERAL [None]
  - HYPERSENSITIVITY [None]
  - FLUSHING [None]
  - ARTHRALGIA [None]
  - DUPUYTREN'S CONTRACTURE [None]
  - INJECTION SITE PAIN [None]
